FAERS Safety Report 5456862-2 (Version None)
Quarter: 2007Q3

REPORT INFORMATION
  Report Type: 
  Country: None (occurrence: None)
  Receive Date: 20070918
  Receipt Date: 20070228
  Transmission Date: 20080115
  Serious: Yes (Hospitalization, Other)
  Sender: FDA-Public Use
  Company Number: US-ASTRAZENECA-2006UW26466

PATIENT
  Age: 282 Month
  Sex: Female
  Weight: 65 kg

DRUGS (3)
  1. SEROQUEL [Suspect]
     Indication: MENTAL DISORDER
     Route: 048
     Dates: end: 20050201
  2. ABILIFY [Suspect]
     Dates: start: 20040101, end: 20061101
  3. PAXIL [Concomitant]
     Dates: start: 20040101, end: 20061101

REACTIONS (4)
  - DIABETES MELLITUS [None]
  - KETOACIDOSIS [None]
  - KETOSIS [None]
  - PANCREATITIS [None]
